FAERS Safety Report 10610689 (Version 8)
Quarter: 2015Q3

REPORT INFORMATION
  Report Type: Spontaneous
  Country: US (occurrence: None)
  Receive Date: 20141124
  Receipt Date: 20150915
  Transmission Date: 20151125
  Serious: Yes (Hospitalization, Other)
  Sender: FDA-Public Use
  Company Number: ADR-2014-00902

PATIENT
  Age: 73 Year
  Sex: Male

DRUGS (2)
  1. BACLOFEN ORAL [Suspect]
     Active Substance: BACLOFEN
     Dosage: 20 MG AS NEEDED
  2. LIORESAL [Suspect]
     Active Substance: BACLOFEN
     Indication: MUSCLE SPASTICITY
     Dosage: 460 MCG / DAY

REACTIONS (14)
  - Pocket erosion [None]
  - Medical device site discharge [None]
  - Device extrusion [None]
  - Asthenia [None]
  - Gait disturbance [None]
  - Medical device site infection [None]
  - Weight bearing difficulty [None]
  - Drug withdrawal syndrome [None]
  - Muscle tightness [None]
  - Wound dehiscence [None]
  - Unevaluable event [None]
  - Performance status decreased [None]
  - Device infusion issue [None]
  - Overdose [None]
